FAERS Safety Report 5279034-3 (Version None)
Quarter: 2007Q1

REPORT INFORMATION
  Report Type: 
  Country: None (occurrence: None)
  Receive Date: 20070328
  Receipt Date: 20061129
  Transmission Date: 20070707
  Serious: No
  Sender: FDA-Public Use
  Company Number: US-AMGEN-KDL197654

PATIENT
  Sex: Female
  Weight: 65.4 kg

DRUGS (6)
  1. NEULASTA [Suspect]
     Indication: CHEMOTHERAPY
     Route: 058
     Dates: start: 20060922, end: 20061020
  2. EQUILIBRIN [Concomitant]
     Route: 065
     Dates: start: 20060921, end: 20061102
  3. FLUOROURACIL [Concomitant]
     Route: 065
  4. CYTOXAN [Concomitant]
     Route: 065
     Dates: start: 20060921, end: 20061102
  5. FLUOROURACIL [Concomitant]
     Dates: start: 20060921, end: 20061102
  6. PROZAC [Concomitant]

REACTIONS (2)
  - LOSS OF CONSCIOUSNESS [None]
  - MENTAL STATUS CHANGES [None]
